FAERS Safety Report 6121554-3 (Version None)
Quarter: 2009Q1

REPORT INFORMATION
  Report Type: 
  Country: None (occurrence: None)
  Receive Date: 20090313
  Receipt Date: 20090225
  Transmission Date: 20090719
  Serious: Yes (Hospitalization, Disabling)
  Sender: FDA-Public Use
  Company Number: 8043751

PATIENT
  Age: 52 Year
  Sex: Male

DRUGS (17)
  1. KEPPRA [Suspect]
     Indication: CONVULSION
     Dosage: 750 MO /D PO
     Route: 048
     Dates: start: 20080603, end: 20081219
  2. HEXAQUINE [Suspect]
     Indication: MUSCLE SPASMS
     Dosage: 1 DF 3/D PO
     Route: 048
     Dates: start: 20080529, end: 20081219
  3. INIPOMP  /01263201/ [Suspect]
     Dosage: 40 MG 1/D PO
     Route: 048
     Dates: start: 20080529, end: 20081219
  4. TAHOR [Suspect]
     Dosage: 10 MG 1/D PO
     Route: 048
     Dates: start: 20070417, end: 20081219
  5. COLCHICINE OPOCALCIUM [Suspect]
     Dosage: PRN
     Dates: start: 20080530, end: 20081219
  6. LASIX [Suspect]
     Dosage: 250 MG 1/D PO
     Route: 048
     Dates: start: 20080601
  7. MONOTILDIEM /00489701/ [Suspect]
     Dosage: 1 DF 1/D PO
     Route: 048
     Dates: start: 20070418
  8. VASTAREL /00489701/ [Suspect]
     Dosage: 1 DF 1/D PO
     Route: 048
     Dates: start: 20080530, end: 20081219
  9. ENGERIX-B [Suspect]
     Dosage: SC
     Route: 058
     Dates: start: 20080701
  10. CALCIDOSE  /00108001/ [Concomitant]
  11. OXYNORM [Concomitant]
  12. RENAGEL /01459901/ [Concomitant]
  13. SPECIAFOLDINE [Concomitant]
  14. ONDANSETRON [Concomitant]
  15. GAVISCON /00237601/ [Concomitant]
  16. FORLAX [Concomitant]
  17. ARANESP [Concomitant]

REACTIONS (4)
  - ABDOMINAL PAIN UPPER [None]
  - OESOPHAGITIS HAEMORRHAGIC [None]
  - PURPURA [None]
  - THROMBOCYTOPENIA [None]
